FAERS Safety Report 10038723 (Version 3)
Quarter: 2014Q2

REPORT INFORMATION
  Report Type: Spontaneous
  Country: DE (occurrence: DE)
  Receive Date: 20140326
  Receipt Date: 20140515
  Transmission Date: 20141212
  Serious: Yes (Other)
  Sender: FDA-Public Use
  Company Number: DE-JNJFOC-20140309465

PATIENT
  Sex: Female
  Weight: 69 kg

DRUGS (3)
  1. XARELTO [Suspect]
     Indication: PULMONARY EMBOLISM
     Route: 048
     Dates: start: 20140208
  2. ILOMEDINE [Concomitant]
     Indication: OSTEONECROSIS
     Route: 041
     Dates: start: 20140129, end: 20140202
  3. AZATHIOPRIN [Concomitant]
     Indication: CROHN^S DISEASE
     Route: 048

REACTIONS (1)
  - Blood triglycerides increased [Unknown]
